FAERS Safety Report 22185134 (Version 1)
Quarter: 2023Q2

REPORT INFORMATION
  Report Type: Spontaneous
  Country: US (occurrence: None)
  Receive Date: 20230407
  Receipt Date: 20230407
  Transmission Date: 20230721
  Serious: Yes (Hospitalization, Other)
  Sender: FDA-Public Use
  Company Number: US-Unichem Pharmaceuticals (USA) Inc-UCM202303-000374

PATIENT
  Age: 77 Year
  Sex: Male

DRUGS (1)
  1. AMIODARONE HYDROCHLORIDE [Suspect]
     Active Substance: AMIODARONE HYDROCHLORIDE
     Indication: Arrhythmia supraventricular
     Dosage: UNKNOWN
     Route: 048

REACTIONS (5)
  - Syncope [Unknown]
  - Hypokalaemia [Unknown]
  - Bradycardia [Unknown]
  - Torsade de pointes [Recovered/Resolved]
  - Drug ineffective for unapproved indication [Unknown]
